FAERS Safety Report 16547023 (Version 4)
Quarter: 2021Q1

REPORT INFORMATION
  Report Type: Report from Study
  Country: CA (occurrence: CA)
  Receive Date: 20190709
  Receipt Date: 20210301
  Transmission Date: 20210419
  Serious: Yes (Death, Other)
  Sender: FDA-Public Use
  Company Number: PHHY2019CA157938

PATIENT
  Age: 33 Year
  Sex: Male
  Weight: 90 kg

DRUGS (1)
  1. TRAMETINIB [Suspect]
     Active Substance: TRAMETINIB
     Indication: NEUROFIBROMA
     Dosage: 2 MG, QD
     Route: 048
     Dates: start: 20190405, end: 20190601

REACTIONS (4)
  - Spinal cord compression [Unknown]
  - Neurofibrosarcoma [Fatal]
  - Second primary malignancy [Fatal]
  - Rash [Unknown]

NARRATIVE: CASE EVENT DATE: 20190617
